FAERS Safety Report 4953880-5 (Version None)
Quarter: 2006Q1

REPORT INFORMATION
  Report Type: 
  Country: None (occurrence: None)
  Receive Date: 20060324
  Receipt Date: 20060324
  Transmission Date: 20060701
  Serious: Yes (Other)
  Sender: FDA-Public Use
  Company Number: None

PATIENT
  Sex: Female
  Weight: 27.6694 kg

DRUGS (1)
  1. NEXAVAR [Suspect]
     Indication: RENAL CELL CARCINOMA STAGE UNSPECIFIED
     Dosage: 400 MG BID PO
     Route: 048
     Dates: start: 20060223, end: 20060310

REACTIONS (13)
  - ASTHENIA [None]
  - DIARRHOEA [None]
  - DYSPNOEA [None]
  - FALL [None]
  - FATIGUE [None]
  - NEUROPATHY [None]
  - PARAESTHESIA [None]
  - PULMONARY EMBOLISM [None]
  - RASH [None]
  - RASH ERYTHEMATOUS [None]
  - RASH MACULAR [None]
  - SENSORY DISTURBANCE [None]
  - SPINAL CORD COMPRESSION [None]
